FAERS Safety Report 20122942 (Version 1)
Quarter: 2021Q4

REPORT INFORMATION
  Report Type: Spontaneous
  Country: FR (occurrence: FR)
  Receive Date: 20211129
  Receipt Date: 20211129
  Transmission Date: 20220303
  Serious: Yes (Hospitalization, Congenital Anomaly, Other)
  Sender: FDA-Public Use
  Company Number: FR-ABBVIE-21K-056-4176727-00

PATIENT
  Sex: Male

DRUGS (6)
  1. VALPROATE SODIUM [Suspect]
     Active Substance: VALPROATE SODIUM
     Indication: Maternal exposure timing unspecified
     Route: 064
     Dates: start: 19820404, end: 19821210
  2. PHENOBARBITAL [Suspect]
     Active Substance: PHENOBARBITAL
     Indication: Maternal exposure timing unspecified
     Route: 064
  3. ORTENAL [Suspect]
     Active Substance: AMPHETAMINE SULFATE\PHENOBARBITAL
     Indication: Maternal exposure timing unspecified
     Route: 064
  4. HERBALS\METHENAMINE HIPPURATE\PHENOBARBITAL [Suspect]
     Active Substance: HERBALS\METHENAMINE HIPPURATE\PHENOBARBITAL
     Indication: Maternal exposure timing unspecified
     Route: 064
  5. TRIMETHADIONE [Suspect]
     Active Substance: TRIMETHADIONE
     Indication: Maternal exposure timing unspecified
     Route: 064
  6. ATARAX [Concomitant]
     Active Substance: HYDROXYZINE HYDROCHLORIDE
     Indication: Maternal exposure timing unspecified

REACTIONS (21)
  - Congenital genital malformation [Unknown]
  - Hypotonia [Unknown]
  - Hydrocele [Unknown]
  - Phimosis [Unknown]
  - Inguinal hernia [Unknown]
  - Growth retardation [Unknown]
  - Tooth malformation [Unknown]
  - Hip deformity [Unknown]
  - Language disorder [Unknown]
  - Congenital foot malformation [Unknown]
  - Learning disorder [Unknown]
  - Executive dysfunction [Unknown]
  - Strabismus [Unknown]
  - Oropharyngeal discomfort [Unknown]
  - Nasal disorder [Unknown]
  - Ear disorder [Unknown]
  - Premature baby [Unknown]
  - Amblyopia [Unknown]
  - Knee deformity [Unknown]
  - Cardiac murmur [Unknown]
  - Foetal exposure during pregnancy [Unknown]

NARRATIVE: CASE EVENT DATE: 19850525
